FAERS Safety Report 9844271 (Version 1)
Quarter: 2014Q1

REPORT INFORMATION
  Report Type: Spontaneous
  Country: US (occurrence: US)
  Receive Date: 20140127
  Receipt Date: 20140127
  Transmission Date: 20141002
  Serious: No
  Sender: FDA-Public Use
  Company Number: US-BIOGENIDEC-2014BI008163

PATIENT
  Sex: Male

DRUGS (6)
  1. TYSABRI [Suspect]
     Indication: MULTIPLE SCLEROSIS
     Route: 042
     Dates: start: 20121121, end: 20130930
  2. GABAPENTIN [Concomitant]
     Route: 048
  3. HYDROCODONE ACETAMINOPHEN [Concomitant]
  4. SOLU-MEDROL [Concomitant]
  5. SOLU-MEDROL [Concomitant]
  6. AUBAGIO [Concomitant]

REACTIONS (3)
  - Neurological decompensation [Unknown]
  - Gait disturbance [Unknown]
  - Multiple sclerosis [Unknown]
